FAERS Safety Report 13583798 (Version 3)
Quarter: 2017Q2

REPORT INFORMATION
  Report Type: Report from Study
  Country: PE (occurrence: PE)
  Receive Date: 20170526
  Receipt Date: 20170614
  Transmission Date: 20170830
  Serious: Yes (Death, Hospitalization, Other)
  Sender: FDA-Public Use
  Company Number: PE-BRISTOL-MYERS SQUIBB COMPANY-BMS-2017-044240

PATIENT
  Age: 53 Year
  Sex: Male

DRUGS (1)
  1. NIVOLUMAB [Suspect]
     Active Substance: NIVOLUMAB
     Indication: METASTATIC MALIGNANT MELANOMA
     Dosage: 100 MG, EVERY 15 DYAS
     Route: 065
     Dates: start: 20170506

REACTIONS (7)
  - General physical health deterioration [Unknown]
  - Electrolyte imbalance [Unknown]
  - Haemoglobin decreased [Unknown]
  - Multiple organ dysfunction syndrome [Fatal]
  - Pyrexia [Unknown]
  - Anaemia [Unknown]
  - Transfusion [Unknown]

NARRATIVE: CASE EVENT DATE: 20170506
